FAERS Safety Report 9667612 (Version 2)
Quarter: 2013Q4

REPORT INFORMATION
  Report Type: Spontaneous
  Country: US (occurrence: US)
  Receive Date: 20131104
  Receipt Date: 20131104
  Transmission Date: 20140711
  Serious: Yes (Hospitalization, Other)
  Sender: FDA-Public Use
  Company Number: US-ABBVIE-13P-163-1125250-00

PATIENT
  Age: 54 Year
  Sex: Male
  Weight: 83.99 kg

DRUGS (8)
  1. ANDROGEL [Suspect]
     Indication: BLOOD TESTOSTERONE DECREASED
     Dosage: 2 PUMPS DAILY
     Route: 061
     Dates: start: 2010
  2. ANDROGEL [Suspect]
     Dosage: 2 PUMPS DAILY
     Dates: start: 20130713
  3. METHADONE [Concomitant]
     Indication: BACK PAIN
  4. BENICAR [Concomitant]
     Indication: HYPERTENSION
  5. LIVALO [Concomitant]
     Indication: BLOOD CHOLESTEROL INCREASED
  6. JANUMET [Concomitant]
     Indication: DIABETES MELLITUS
  7. VICTOZA [Concomitant]
     Indication: DIABETES MELLITUS
  8. KLONOPIN [Concomitant]
     Indication: MOOD SWINGS

REACTIONS (7)
  - Abdominal pain upper [Recovered/Resolved]
  - Fatigue [Recovered/Resolved]
  - Vomiting [Recovered/Resolved]
  - Diarrhoea [Recovered/Resolved]
  - Gastritis [Recovered/Resolved]
  - Loss of consciousness [Recovered/Resolved]
  - Drug dose omission [Unknown]
